FAERS Safety Report 17857031 (Version 5)
Quarter: 2021Q1

REPORT INFORMATION
  Report Type: Report from Study
  Country: JP (occurrence: JP)
  Receive Date: 20200603
  Receipt Date: 20210210
  Transmission Date: 20210419
  Serious: Yes (Hospitalization)
  Sender: FDA-Public Use
  Company Number: JP-EISAI MEDICAL RESEARCH-EC-2019-063989

PATIENT
  Age: 46 Year
  Sex: Female
  Weight: 51 kg

DRUGS (3)
  1. PERTUZUMAB(GENETICAL RECOMBINATION) [Suspect]
     Active Substance: PERTUZUMAB
     Indication: BREAST CANCER
     Route: 041
     Dates: start: 201805
  2. TRASTUZUMAB(GENETICAL RECOMBINATION) [Suspect]
     Active Substance: TRASTUZUMAB
     Indication: BREAST CANCER
     Route: 041
     Dates: start: 201805
  3. ERIBULIN [Suspect]
     Active Substance: ERIBULIN
     Indication: BREAST CANCER
     Dosage: DOSE UNKNOWN
     Route: 042
     Dates: start: 20190315, end: 20200507

REACTIONS (3)
  - Metastases to spine [Recovered/Resolved]
  - Neuropathy peripheral [Recovering/Resolving]
  - Pathological fracture [Not Recovered/Not Resolved]

NARRATIVE: CASE EVENT DATE: 20190501
